FAERS Safety Report 12555932 (Version 2)
Quarter: 2016Q3

REPORT INFORMATION
  Report Type: Spontaneous
  Country: CN (occurrence: CN)
  Receive Date: 20160714
  Receipt Date: 20160730
  Transmission Date: 20161109
  Serious: Yes (Death, Other)
  Sender: FDA-Public Use
  Company Number: CN-ASTRAZENECA-2016SE38243

PATIENT
  Age: 83 Year
  Sex: Male

DRUGS (2)
  1. IRESSA [Suspect]
     Active Substance: GEFITINIB
     Indication: LUNG ADENOCARCINOMA
     Route: 048
     Dates: start: 20151228
  2. LEVAMLODIPINE BESLATE [Concomitant]
     Indication: BLOOD PRESSURE ABNORMAL

REACTIONS (23)
  - Metastases to pleura [Unknown]
  - Chest discomfort [Unknown]
  - Cerebral infarction [Unknown]
  - Cerebral atrophy [Unknown]
  - Tachypnoea [Unknown]
  - Coma [Unknown]
  - Muscular weakness [Unknown]
  - Renal cyst [Unknown]
  - Blood pressure decreased [Not Recovered/Not Resolved]
  - Bronchitis [Unknown]
  - Respiratory failure [Fatal]
  - Lacunar infarction [Unknown]
  - Pleural effusion [Unknown]
  - Prostatic calcification [Unknown]
  - Hepatic cyst [Unknown]
  - Interstitial lung disease [Not Recovered/Not Resolved]
  - Metastases to bone [Unknown]
  - Depressed level of consciousness [Unknown]
  - Oxygen saturation decreased [Not Recovered/Not Resolved]
  - Anaemia [Unknown]
  - White matter lesion [Unknown]
  - Hypertension [Unknown]
  - Benign prostatic hyperplasia [Unknown]

NARRATIVE: CASE EVENT DATE: 20160331
